FAERS Safety Report 9674978 (Version 2)
Quarter: 2013Q4

REPORT INFORMATION
  Report Type: Spontaneous
  Country: US (occurrence: US)
  Receive Date: 20131107
  Receipt Date: 20131113
  Transmission Date: 20140711
  Serious: Yes (Death, Hospitalization, Other)
  Sender: FDA-Public Use
  Company Number: US-ASTELLAS-2013US011517

PATIENT
  Age: 75 Year
  Sex: Male

DRUGS (10)
  1. TARCEVA [Suspect]
     Indication: LUNG NEOPLASM MALIGNANT
     Dosage: 150 MG, UID/QD
     Route: 048
     Dates: start: 20130901, end: 20130925
  2. TARCEVA [Interacting]
     Dosage: 150 MG, UID/QD
     Route: 048
     Dates: end: 20131001
  3. COUMADIN SODIUM [Interacting]
     Indication: PRODUCT USED FOR UNKNOWN INDICATION
     Dosage: 1.5 MG, UNKNOWN/D
     Route: 065
  4. COMBIVENT [Concomitant]
     Indication: PRODUCT USED FOR UNKNOWN INDICATION
     Dosage: 103 UG, UNKNOWN/D
     Route: 065
  5. DUONEB [Concomitant]
     Indication: PRODUCT USED FOR UNKNOWN INDICATION
     Dosage: 1 VIAL (1 IN 8)
     Route: 065
  6. FLONASE [Concomitant]
     Indication: PRODUCT USED FOR UNKNOWN INDICATION
     Dosage: 50 UG, UNKNOWN/D
     Route: 065
  7. HYDROCODONE W/ACETAMINOPHEN [Concomitant]
     Indication: PRODUCT USED FOR UNKNOWN INDICATION
     Dosage: 5 MG/325 MG, UNKNOWN/D
     Route: 048
  8. PANTOPRAZOLE [Concomitant]
     Indication: PRODUCT USED FOR UNKNOWN INDICATION
     Dosage: 40 MG, UNKNOWN/D
     Route: 048
  9. QVAR [Concomitant]
     Indication: PRODUCT USED FOR UNKNOWN INDICATION
     Dosage: 40 UG, UNKNOWN/D
     Route: 065
  10. TERAZOSIN HCL [Concomitant]
     Indication: PRODUCT USED FOR UNKNOWN INDICATION
     Dosage: 5 MG, UNKNOWN/D
     Route: 048

REACTIONS (17)
  - Atrial fibrillation [Unknown]
  - Hypovolaemia [Unknown]
  - Coagulation time prolonged [Unknown]
  - Drug interaction [Unknown]
  - International normalised ratio increased [Unknown]
  - Asthenia [Unknown]
  - Malignant neoplasm progression [Fatal]
  - Local swelling [Recovering/Resolving]
  - Insomnia [Unknown]
  - Rhinorrhoea [Unknown]
  - Hypotension [Unknown]
  - Cough [Unknown]
  - Diarrhoea [Unknown]
  - Decreased appetite [Unknown]
  - Back pain [Unknown]
  - Dyspnoea exertional [Unknown]
  - Weight decreased [Unknown]
